FAERS Safety Report 11220457 (Version 8)
Quarter: 2016Q3

REPORT INFORMATION
  Report Type: Report from Study
  Country: MX (occurrence: MX)
  Receive Date: 20150625
  Receipt Date: 20160812
  Transmission Date: 20161109
  Serious: Yes (Hospitalization, Disabling)
  Sender: FDA-Public Use
  Company Number: MX-ROCHE-1392631

PATIENT
  Age: 59 Year
  Sex: Female
  Weight: 84 kg

DRUGS (13)
  1. PLAQUENIL [Concomitant]
     Active Substance: HYDROXYCHLOROQUINE SULFATE
     Indication: RHEUMATOID ARTHRITIS
  2. LYRICA [Concomitant]
     Active Substance: PREGABALIN
     Indication: RHEUMATOID ARTHRITIS
     Route: 048
     Dates: start: 201507, end: 201603
  3. ALGITRIN [Concomitant]
  4. CYMBALTA [Concomitant]
     Active Substance: DULOXETINE HYDROCHLORIDE
     Route: 065
  5. MABTHERA [Suspect]
     Active Substance: RITUXIMAB
     Indication: RHEUMATOID ARTHRITIS
     Route: 042
     Dates: start: 201202
  6. MABTHERA [Suspect]
     Active Substance: RITUXIMAB
     Dosage: DATE OF MOST RECENT INFUSION: 03/MAR/2015
     Route: 042
     Dates: start: 20150217
  7. CELECOXIB. [Concomitant]
     Active Substance: CELECOXIB
     Indication: RHEUMATOID ARTHRITIS
     Route: 048
     Dates: start: 20150716
  8. LEDERTREXATE [Concomitant]
     Active Substance: METHOTREXATE
     Indication: RHEUMATOID ARTHRITIS
     Dosage: ON SATURDAYS
     Route: 048
     Dates: start: 2005, end: 201202
  9. LEDERTREXATE [Concomitant]
     Active Substance: METHOTREXATE
     Dosage: ON SATURDAYS
     Route: 048
     Dates: start: 201202, end: 2014
  10. ARCOXIA [Concomitant]
     Active Substance: ETORICOXIB
     Indication: RHEUMATOID ARTHRITIS
  11. LYRICA [Concomitant]
     Active Substance: PREGABALIN
     Dosage: 75 MG IN THE MORNING, 150 MG AT NIGHT
     Route: 048
     Dates: start: 201603
  12. FOLINIC ACID [Concomitant]
     Active Substance: LEUCOVORIN
     Indication: PROPHYLAXIS
     Dosage: FROM MONDAY TO FRIDAY
     Route: 048
     Dates: start: 2005
  13. LEDERTREXATE [Concomitant]
     Active Substance: METHOTREXATE
     Dosage: ON SATURDAYS
     Route: 048
     Dates: start: 20150716

REACTIONS (20)
  - Myalgia [Not Recovered/Not Resolved]
  - Spinal deformity [Not Recovered/Not Resolved]
  - Arthralgia [Not Recovered/Not Resolved]
  - Spinal pain [Not Recovered/Not Resolved]
  - Sneezing [Recovered/Resolved]
  - Arthralgia [Recovered/Resolved]
  - Drug ineffective [Unknown]
  - Weight increased [Not Recovered/Not Resolved]
  - Body temperature increased [Recovered/Resolved]
  - Chills [Recovered/Resolved]
  - Osteoporosis [Not Recovered/Not Resolved]
  - Muscle rigidity [Not Recovered/Not Resolved]
  - Pyrexia [Recovered/Resolved]
  - Walking disability [Not Recovered/Not Resolved]
  - Nasopharyngitis [Recovered/Resolved]
  - Nerve compression [Not Recovered/Not Resolved]
  - Intervertebral disc protrusion [Not Recovered/Not Resolved]
  - Pain [Not Recovered/Not Resolved]
  - Paraesthesia [Not Recovered/Not Resolved]
  - Back pain [Not Recovered/Not Resolved]

NARRATIVE: CASE EVENT DATE: 201202
